FAERS Safety Report 15972644 (Version 1)
Quarter: 2019Q1

REPORT INFORMATION
  Report Type: Report from Study
  Country: DE (occurrence: DE)
  Receive Date: 20190216
  Receipt Date: 20190216
  Transmission Date: 20190418
  Serious: Yes (Death, Life-Threatening, Hospitalization, Other)
  Sender: FDA-Public Use
  Company Number: DE-ACCORD-107453

PATIENT
  Age: 74 Year
  Sex: Female
  Weight: 60 kg

DRUGS (11)
  1. BEVACIZUMAB. [Suspect]
     Active Substance: BEVACIZUMAB
     Indication: COLORECTAL CANCER METASTATIC
     Route: 042
     Dates: start: 20131113, end: 20131113
  2. METFORMIN [Concomitant]
     Active Substance: METFORMIN HYDROCHLORIDE
     Route: 065
  3. METOPROLOL. [Concomitant]
     Active Substance: METOPROLOL
     Indication: HYPERTENSION
     Route: 065
     Dates: start: 20110101
  4. FLUOROURACIL. [Suspect]
     Active Substance: FLUOROURACIL
     Indication: COLON CANCER
     Dosage: 810 - 830 MG
     Route: 042
     Dates: start: 20130904, end: 20131121
  5. MARCUMAR [Concomitant]
     Active Substance: PHENPROCOUMON
     Dosage: ACCORDING TO SCHEDULE
     Route: 065
  6. ENALAPRIL [Concomitant]
     Active Substance: ENALAPRIL
     Indication: HYPERTENSION
     Route: 065
     Dates: start: 20110101
  7. CALCIUM FOLINATE [Suspect]
     Active Substance: LEUCOVORIN CALCIUM
     Indication: COLON CANCER
     Route: 042
     Dates: start: 20130904, end: 20131121
  8. NOVODIGAL [Concomitant]
     Indication: TACHYARRHYTHMIA
  9. BEVACIZUMAB. [Suspect]
     Active Substance: BEVACIZUMAB
     Indication: COLORECTAL CANCER METASTATIC
     Dosage: 320 MG 13/NOV/2013
     Route: 042
     Dates: start: 20130904, end: 20130904
  10. AMIODARONE [Concomitant]
     Active Substance: AMIODARONE
     Indication: ATRIAL FIBRILLATION
     Dosage: CUMULATIVE DOSE 2 G.
     Route: 065
     Dates: start: 20140102
  11. CARMEN [Suspect]
     Active Substance: LERCANIDIPINE
     Indication: COLON CANCER
     Route: 065

REACTIONS (9)
  - Metastases to pleura [Fatal]
  - Pneumonia [Recovered/Resolved]
  - Pulmonary embolism [Fatal]
  - Atrial fibrillation [Fatal]
  - Urinary tract infection [Recovered/Resolved]
  - Thrombosis [Fatal]
  - Left ventricular dysfunction [Fatal]
  - Malignant neoplasm progression [Fatal]
  - Pleural effusion [Fatal]

NARRATIVE: CASE EVENT DATE: 20131126
